FAERS Safety Report 17092348 (Version 2)
Quarter: 2020Q2

REPORT INFORMATION
  Report Type: Spontaneous
  Country: DK (occurrence: DK)
  Receive Date: 20191129
  Receipt Date: 20200507
  Transmission Date: 20200713
  Serious: Yes (Other)
  Sender: FDA-Public Use
  Company Number: DK-PFIZER INC-2019510916

PATIENT
  Age: 39 Year
  Sex: Female
  Weight: 63 kg

DRUGS (1)
  1. SERTRALINE HCL [Suspect]
     Active Substance: SERTRALINE HYDROCHLORIDE
     Indication: ANXIETY
     Dosage: DOSE: 25-50MG
     Route: 048
     Dates: start: 20000901

REACTIONS (6)
  - Glaucoma [Not Recovered/Not Resolved]
  - Eye haemorrhage [Unknown]
  - Dizziness [Unknown]
  - Derealisation [Unknown]
  - Emotional poverty [Unknown]
  - Headache [Unknown]

NARRATIVE: CASE EVENT DATE: 2004
